FAERS Safety Report 18092366 (Version 1)
Quarter: 2020Q3

REPORT INFORMATION
  Report Type: Spontaneous
  Country: US (occurrence: US)
  Receive Date: 20200730
  Receipt Date: 20200730
  Transmission Date: 20201103
  Serious: Yes (Other)
  Sender: FDA-Public Use
  Company Number: None

PATIENT
  Age: 75 Year
  Sex: Female
  Weight: 78.75 kg

DRUGS (15)
  1. XANAX [Concomitant]
     Active Substance: ALPRAZOLAM
  2. OMEPRAZOLE. [Concomitant]
     Active Substance: OMEPRAZOLE
  3. DITROPAN [Concomitant]
     Active Substance: OXYBUTYNIN CHLORIDE
  4. LOW DOSE ASPIRIN [Concomitant]
     Active Substance: ASPIRIN
  5. LASIX [Concomitant]
     Active Substance: FUROSEMIDE
  6. LISINOPRIL. [Concomitant]
     Active Substance: LISINOPRIL
  7. ADVAIR HFA [Concomitant]
     Active Substance: FLUTICASONE PROPIONATE\SALMETEROL XINAFOATE
  8. BUPROPRION [Concomitant]
     Active Substance: BUPROPION
  9. SERTRALINE [Concomitant]
     Active Substance: SERTRALINE HYDROCHLORIDE
  10. EVISTA [Concomitant]
     Active Substance: RALOXIFENE HYDROCHLORIDE
  11. PROPRANOLOL [Concomitant]
     Active Substance: PROPRANOLOL HYDROCHLORIDE
  12. BENADRYL [Concomitant]
     Active Substance: DIPHENHYDRAMINE HYDROCHLORIDE
  13. LEVAQUIN [Suspect]
     Active Substance: LEVOFLOXACIN
     Indication: URINARY TRACT INFECTION
     Dosage: ?          QUANTITY:5 TABLET(S);?
     Route: 048
     Dates: start: 20200724, end: 20200728
  14. TURMERIC [Concomitant]
     Active Substance: HERBALS\TURMERIC
  15. VITAMIN C [Concomitant]
     Active Substance: ASCORBIC ACID

REACTIONS (4)
  - Skin discolouration [None]
  - Pain in extremity [None]
  - Oedema peripheral [None]
  - Limb discomfort [None]

NARRATIVE: CASE EVENT DATE: 20200726
